FAERS Safety Report 5211083-3 (Version None)
Quarter: 2006Q4

REPORT INFORMATION
  Report Type: 
  Country: None (occurrence: None)
  Receive Date: 20061114
  Receipt Date: 20060724
  Transmission Date: 20070319
  Serious: No
  Sender: FDA-Public Use
  Company Number: S06-USA-02986-02

PATIENT
  Sex: Male

DRUGS (2)
  1. NAMENDA [Suspect]
     Indication: NEURALGIA
     Dates: start: 20060101
  2. ZICONOTIDE [Suspect]
     Indication: NEURALGIA

REACTIONS (2)
  - DRUG INTERACTION [None]
  - DYSURIA [None]
